FAERS Safety Report 8783437 (Version 4)
Quarter: 2013Q2

REPORT INFORMATION
  Report Type: Spontaneous
  Country: US (occurrence: US)
  Receive Date: 20120913
  Receipt Date: 20130620
  Transmission Date: 20140414
  Serious: Yes (Hospitalization, Other)
  Sender: FDA-Public Use
  Company Number: US-009507513-1202USA00834

PATIENT
  Sex: Female
  Weight: 59.41 kg

DRUGS (5)
  1. FOSAMAX [Suspect]
     Indication: OSTEOPOROSIS
     Dosage: 10 MG, UNK
     Route: 048
     Dates: start: 1998, end: 200709
  2. FOSAMAX [Suspect]
     Dosage: 70 MG, UNK
     Route: 048
     Dates: start: 1998, end: 200709
  3. FOSAMAX PLUS D [Suspect]
     Indication: OSTEOPOROSIS
     Dosage: 70 MG, UNK
     Route: 048
     Dates: start: 200707, end: 200802
  4. VITAMIN D (UNSPECIFIED) [Concomitant]
     Dosage: 2000 IU, QD
     Route: 048
     Dates: start: 2003
  5. CALCIUM (UNSPECIFIED) [Concomitant]
     Dosage: UNK
     Dates: start: 2003

REACTIONS (29)
  - Femoral neck fracture [Recovered/Resolved]
  - Intramedullary rod insertion [Not Recovered/Not Resolved]
  - Impaired healing [Unknown]
  - Hip arthroplasty [Recovered/Resolved]
  - Hip arthroplasty [Unknown]
  - Femur fracture [Recovered/Resolved]
  - Femur fracture [Recovered/Resolved]
  - Transfusion [Recovered/Resolved]
  - Transaminases increased [Recovered/Resolved]
  - Haemorrhage [Unknown]
  - Atrophic vulvovaginitis [Unknown]
  - Uterine cervix atrophy [Unknown]
  - Breast pain [Unknown]
  - Cystocele [Unknown]
  - Osteopenia [Unknown]
  - Hypothyroidism [Unknown]
  - Post procedural constipation [Recovered/Resolved]
  - Ecchymosis [Unknown]
  - Liver function test abnormal [Unknown]
  - Osteoarthritis [Unknown]
  - Bone cyst [Unknown]
  - Tonsillectomy [Unknown]
  - Tendon sheath incision [Unknown]
  - Smear cervix abnormal [Unknown]
  - Loop electrosurgical excision procedure [Unknown]
  - Pollakiuria [Unknown]
  - Hypocalcaemia [Unknown]
  - Arthralgia [Unknown]
  - Alopecia [Unknown]
